FAERS Safety Report 18688116 (Version 2)
Quarter: 2021Q1

REPORT INFORMATION
  Report Type: Report from Study
  Country: JP (occurrence: JP)
  Receive Date: 20201231
  Receipt Date: 20210218
  Transmission Date: 20210419
  Serious: Yes (Death, Hospitalization, Other)
  Sender: FDA-Public Use
  Company Number: JP-AMGEN-JPNCT2020211482

PATIENT
  Age: 84 Year
  Sex: Male

DRUGS (24)
  1. EQUA [Concomitant]
     Active Substance: VILDAGLIPTIN
     Indication: DIABETES MELLITUS
     Dosage: 50 MG
     Route: 048
     Dates: end: 20200313
  2. TAZOPIPE [Concomitant]
     Active Substance: PIPERACILLIN SODIUM\TAZOBACTAM SODIUM
     Dosage: 9 G
     Route: 042
     Dates: start: 20191213, end: 20200101
  3. VANCOMYCIN HYDROCHLORIDE. [Concomitant]
     Active Substance: VANCOMYCIN HYDROCHLORIDE
     Dosage: 2 G
     Route: 065
     Dates: start: 20191224, end: 20200116
  4. DARBEPOETIN ALFA [Suspect]
     Active Substance: DARBEPOETIN ALFA
     Indication: MYELODYSPLASTIC SYNDROME
     Dosage: 240 MICROGRAM, QWK
     Route: 058
     Dates: start: 20191107, end: 20191205
  5. PREDONINE [Concomitant]
     Active Substance: PREDNISOLONE
     Dosage: 20 MG
     Route: 048
     Dates: start: 20200206, end: 20200212
  6. PREDONINE [Concomitant]
     Active Substance: PREDNISOLONE
     Dosage: 15 MG
     Route: 048
     Dates: start: 20200213, end: 20200304
  7. SOLU?CORTEF [Concomitant]
     Active Substance: HYDROCORTISONE SODIUM SUCCINATE
     Dosage: 200 MG
     Route: 065
     Dates: end: 20200216
  8. DARBEPOETIN ALFA [Suspect]
     Active Substance: DARBEPOETIN ALFA
     Dosage: 240 MICROGRAM, QWK
     Route: 058
     Dates: start: 20190627, end: 20190725
  9. MECOBALAMIN [Concomitant]
     Active Substance: METHYLCOBALAMIN
     Indication: NEUROPATHY PERIPHERAL
     Dosage: 1500 MICROGRAM
     Route: 048
     Dates: end: 20190703
  10. TRIMETHOPRIM SULFAMETHOXAZOLE [Concomitant]
     Active Substance: SULFAMETHOXAZOLE\TRIMETHOPRIM
     Dosage: 1 DF
     Route: 048
     Dates: end: 20200313
  11. PREDONINE [Concomitant]
     Active Substance: PREDNISOLONE
     Dosage: 10 MG
     Route: 048
     Dates: start: 20200305, end: 20200313
  12. CEFEPIME DIHYDROCHLORIDE [Concomitant]
     Active Substance: CEFEPIME HYDROCHLORIDE
     Dosage: 4 G
     Route: 065
     Dates: start: 20200117, end: 20200130
  13. NONTHRON [Concomitant]
     Indication: ANTITHROMBIN III DECREASED
     Dosage: 1500 IU
     Route: 065
     Dates: start: 20191212, end: 20200201
  14. CICLOSPORIN [Concomitant]
     Active Substance: CYCLOSPORINE
     Indication: APLASTIC ANAEMIA
     Dosage: 200 MG
     Route: 048
     Dates: end: 20191023
  15. MEROPENEM. [Concomitant]
     Active Substance: MEROPENEM
     Dosage: 2 G
     Route: 065
     Dates: start: 20191209, end: 20200227
  16. AMBISOME [Concomitant]
     Active Substance: AMPHOTERICIN B
     Dosage: 250 MG
     Route: 042
     Dates: start: 20200101, end: 20200116
  17. REVOLADE [Concomitant]
     Active Substance: ELTROMBOPAG OLAMINE
     Indication: APLASTIC ANAEMIA
     Dosage: 100 MG
     Route: 048
     Dates: end: 20190812
  18. SULPIRIDE [Concomitant]
     Active Substance: SULPIRIDE
     Dosage: 50 MG
     Route: 048
     Dates: end: 20200313
  19. POLARAMINE [Concomitant]
     Active Substance: DEXCHLORPHENIRAMINE MALEATE
     Dosage: 5 MG
     Route: 065
     Dates: end: 20200216
  20. ITRACONAZOLE. [Concomitant]
     Active Substance: ITRACONAZOLE
     Dosage: 100 MG
     Route: 048
     Dates: end: 20200313
  21. JADENU [Concomitant]
     Active Substance: DEFERASIROX
     Indication: MYELODYSPLASTIC SYNDROME
     Dosage: 450 MG
     Route: 048
     Dates: end: 20200313
  22. OMEPRAZOLE. [Concomitant]
     Active Substance: OMEPRAZOLE
     Indication: GASTROOESOPHAGEAL REFLUX DISEASE
     Dosage: 20 MG
     Route: 048
     Dates: end: 20200313
  23. PREDONINE [Concomitant]
     Active Substance: PREDNISOLONE
     Dosage: 30 MG
     Route: 048
     Dates: start: 20200130, end: 20200205
  24. PLATELETS [Concomitant]
     Active Substance: HUMAN PLATELET, ALLOGENIC
     Indication: MYELODYSPLASTIC SYNDROME
     Dosage: 10 U
     Route: 065
     Dates: end: 20200312

REACTIONS (3)
  - Blood pressure decreased [Recovered/Resolved]
  - Death [Fatal]
  - Pyrexia [Recovering/Resolving]

NARRATIVE: CASE EVENT DATE: 20191209
